FAERS Safety Report 23828311 (Version 2)
Quarter: 2024Q4

REPORT INFORMATION
  Report Type: Report from Study
  Country: BR (occurrence: BR)
  Receive Date: 20240508
  Receipt Date: 20241107
  Transmission Date: 20250115
  Serious: Yes (Disabling, Other)
  Sender: CELLTRION
  Company Number: BR-CELLTRION INC.-2022BR014888

PATIENT

DRUGS (15)
  1. INFLIXIMAB-DYYB [Suspect]
     Active Substance: INFLIXIMAB-DYYB
     Indication: Rheumatoid arthritis
     Dosage: 3 AMPOULES EVERY 2 MONTHS
     Route: 042
     Dates: start: 20220804
  2. INFLIXIMAB-DYYB [Suspect]
     Active Substance: INFLIXIMAB-DYYB
     Dosage: UNK
     Dates: start: 20220804
  3. INFLIXIMAB-DYYB [Suspect]
     Active Substance: INFLIXIMAB-DYYB
     Dosage: 3 AMPOULES EVERY 2 MONTHS
     Route: 042
     Dates: start: 20240124
  4. INFLIXIMAB-DYYB [Suspect]
     Active Substance: INFLIXIMAB-DYYB
     Dosage: 3 AMPOULES EVERY 2 MONTHS
     Route: 042
     Dates: start: 20240827
  5. RETINOL [Concomitant]
     Active Substance: RETINOL
     Indication: Rheumatoid arthritis
     Dosage: 1 PILL A DAY (START DATE: 2 YEARS)
     Route: 048
  6. LOSARTAN [Concomitant]
     Active Substance: LOSARTAN
     Indication: Hypertension
     Dosage: 1 PILL A DAY (START DATE: 3 MONTHS)
     Route: 048
  7. SERTRALINE [Concomitant]
     Active Substance: SERTRALINE HYDROCHLORIDE
     Indication: Depression
     Dosage: 3 PILLS A DAY (START DATE: 3 YEARS)
     Route: 048
  8. TRAZODONE [Concomitant]
     Active Substance: TRAZODONE HYDROCHLORIDE
     Indication: Product used for unknown indication
     Dosage: 1 PILL A DAY (STARD DATE: OVER YEAR)
     Route: 048
  9. SIMVASTATIN [Concomitant]
     Active Substance: SIMVASTATIN
     Indication: Blood cholesterol increased
     Dosage: 1 PILL A DAY (START DATE: 4 OR 5 YEARS)
     Route: 048
  10. OMEPRAZOLE [Concomitant]
     Active Substance: OMEPRAZOLE
     Indication: Gastrooesophageal reflux disease
     Dosage: 1 PILL A DAY
     Route: 048
     Dates: start: 2023
  11. BROMOPRIDE [Concomitant]
     Active Substance: BROMOPRIDE
     Indication: Gastrooesophageal reflux disease
     Dosage: 2 PILLS A DAY
     Route: 048
     Dates: start: 2023
  12. ALUMINUM HYDROXIDE [Concomitant]
     Active Substance: ALUMINUM HYDROXIDE
     Indication: Gastrooesophageal reflux disease
     Dosage: 2 PILLS A DAY
     Route: 048
     Dates: start: 2023
  13. THIAMINE HYDROCHLORIDE [Concomitant]
     Active Substance: THIAMINE HYDROCHLORIDE
     Dosage: 1 TABLET IN THE MORNING ^FOR THE BONES^ (FOR MORE 1 YEAR)
  14. LATANOPROST [Concomitant]
     Active Substance: LATANOPROST
     Indication: Glaucoma
     Dosage: 1 DROP IN EACH EYE PER DAY (START DATE: IN USE FOR 3/4 YEARS)
  15. FORMOTEROL FUMARATE DIHYDRATE [Concomitant]
     Active Substance: FORMOTEROL FUMARATE DIHYDRATE
     Indication: Asthma
     Dosage: 10G, ONCE IN THE MORNING AND ONCE AT NIGHT (START DATE: 4/5 YEARS)

REACTIONS (4)
  - Rheumatoid arthritis [Not Recovered/Not Resolved]
  - Bedridden [Recovering/Resolving]
  - Drug ineffective [Not Recovered/Not Resolved]
  - Therapy interrupted [Recovering/Resolving]

NARRATIVE: CASE EVENT DATE: 20240321
